FAERS Safety Report 6325645-3 (Version None)
Quarter: 2009Q3

REPORT INFORMATION
  Report Type: 
  Country: None (occurrence: None)
  Receive Date: 20090824
  Receipt Date: 20090723
  Transmission Date: 20100115
  Serious: No
  Sender: FDA-Public Use
  Company Number: US-ABBOTT-09P-163-0586927-00

PATIENT
  Sex: Female
  Weight: 59.02 kg

DRUGS (4)
  1. NIASPAN [Suspect]
     Indication: BLOOD CHOLESTEROL INCREASED
     Dates: start: 20090721
  2. METFORMIN HCL [Concomitant]
     Indication: DIABETES MELLITUS
  3. BENICAR HCT [Concomitant]
     Indication: HYPERTENSION
     Dosage: 20/12.5 MG DAILY
  4. LEVOTHYROXINE SODIUM [Concomitant]
     Indication: HYPOTHYROIDISM

REACTIONS (1)
  - BLOOD GLUCOSE INCREASED [None]
